FAERS Safety Report 6771665-4 (Version None)
Quarter: 2010Q2

REPORT INFORMATION
  Report Type: 
  Country: None (occurrence: None)
  Receive Date: 20100616
  Receipt Date: 20100609
  Transmission Date: 20101027
  Serious: Yes (Other)
  Sender: FDA-Public Use
  Company Number: FR-ASTRAZENECA-2010SE27023

PATIENT
  Age: 84 Year
  Sex: Male

DRUGS (11)
  1. NEXIUM [Suspect]
     Route: 048
     Dates: end: 20100428
  2. ROCEPHIN [Suspect]
     Indication: INFECTION
     Route: 048
     Dates: start: 20100426, end: 20100428
  3. ARIXTRA [Suspect]
     Dates: start: 20100423, end: 20100428
  4. CORDARONE [Concomitant]
  5. LEVOTHYROXINE SODIUM [Concomitant]
  6. RILMENIDINE [Concomitant]
  7. TAREG [Concomitant]
  8. MODOPAR [Concomitant]
  9. BROMAZEPAM [Concomitant]
  10. ZOPICLONE [Concomitant]
  11. BACTRIM [Concomitant]

REACTIONS (2)
  - NEUTROPENIA [None]
  - THROMBOCYTOPENIA [None]
